FAERS Safety Report 5760321-7 (Version None)
Quarter: 2008Q2

REPORT INFORMATION
  Report Type: 
  Country: None (occurrence: None)
  Receive Date: 20080602
  Receipt Date: 20080520
  Transmission Date: 20081010
  Serious: Yes (Hospitalization)
  Sender: FDA-Public Use
  Company Number: 2008-177773-NL

PATIENT
  Age: 80 Year
  Sex: Female

DRUGS (1)
  1. ZEMURON [Suspect]
     Dosage: DF

REACTIONS (1)
  - DYSPNOEA [None]
